FAERS Safety Report 9361709 (Version 1)
Quarter: 2013Q2

REPORT INFORMATION
  Report Type: Spontaneous
  Country: BR (occurrence: BR)
  Receive Date: 20130621
  Receipt Date: 20130621
  Transmission Date: 20140414
  Serious: Yes (Other)
  Sender: FDA-Public Use
  Company Number: PHHY2013BR064044

PATIENT
  Age: 8 Year
  Sex: Male

DRUGS (1)
  1. RITALIN LA [Suspect]
     Indication: PSYCHOMOTOR HYPERACTIVITY
     Dosage: 1 DF QD
     Route: 048

REACTIONS (2)
  - Nervous system disorder [Recovered/Resolved]
  - Drug administered to patient of inappropriate age [Unknown]
